FAERS Safety Report 20657764 (Version 1)
Quarter: 2022Q1

REPORT INFORMATION
  Report Type: Spontaneous
  Country: US (occurrence: US)
  Receive Date: 20220331
  Receipt Date: 20220331
  Transmission Date: 20220423
  Serious: No
  Sender: FDA-Public Use
  Company Number: US-ELI_LILLY_AND_COMPANY-US202203013557

PATIENT
  Age: 83 Year
  Sex: Male

DRUGS (1)
  1. TRULICITY [Suspect]
     Active Substance: DULAGLUTIDE
     Indication: Type 2 diabetes mellitus
     Dosage: .75 MG, WEEKLY (1/W)
     Route: 058
     Dates: start: 202202

REACTIONS (2)
  - Productive cough [Unknown]
  - Tongue disorder [Unknown]

NARRATIVE: CASE EVENT DATE: 20220330
